FAERS Safety Report 4274510-4 (Version None)
Quarter: 2004Q1

REPORT INFORMATION
  Report Type: 
  Country: None (occurrence: None)
  Receive Date: 20040120
  Receipt Date: 20040109
  Transmission Date: 20041129
  Serious: Yes (Disabling)
  Sender: FDA-Public Use
  Company Number: CH-ROCHE-355605

PATIENT
  Age: 53 Year
  Sex: Male
  Weight: 70 kg

DRUGS (3)
  1. NEOTIGASON [Suspect]
     Dosage: STRENGTH = 25MG CAPSULE
     Route: 048
     Dates: start: 20030709, end: 20030826
  2. NEOTIGASON [Suspect]
     Dosage: STRENGTH = 10MG CAPSULE
     Route: 048
     Dates: start: 20030827, end: 20031110
  3. LEDERCORT [Concomitant]
     Indication: PSORIASIS
     Route: 048
     Dates: start: 20030827, end: 20030910

REACTIONS (2)
  - BLOOD CREATINE PHOSPHOKINASE INCREASED [None]
  - RHABDOMYOLYSIS [None]
